FAERS Safety Report 25045978 (Version 2)
Quarter: 2025Q1

REPORT INFORMATION
  Report Type: Spontaneous
  Country: IE (occurrence: IE)
  Receive Date: 20250306
  Receipt Date: 20250320
  Transmission Date: 20250409
  Serious: Yes (Hospitalization)
  Sender: TEVA
  Company Number: IE-TEVA-VS-3304109

PATIENT
  Sex: Male

DRUGS (2)
  1. ATORVASTATIN [Suspect]
     Active Substance: ATORVASTATIN
     Indication: Cardiovascular event prophylaxis
     Route: 065
  2. APIXABAN [Concomitant]
     Active Substance: APIXABAN
     Indication: Product used for unknown indication
     Route: 065

REACTIONS (3)
  - Necrotising myositis [Recovering/Resolving]
  - Cardiac failure [Recovering/Resolving]
  - Liver injury [Recovering/Resolving]
